FAERS Safety Report 16098546 (Version 1)
Quarter: 2019Q1

REPORT INFORMATION
  Report Type: Spontaneous
  Country: CA (occurrence: CA)
  Receive Date: 20190321
  Receipt Date: 20190321
  Transmission Date: 20190418
  Serious: Yes (Other)
  Sender: FDA-Public Use
  Company Number: CA-TEVA-2019-CA-1026375

PATIENT
  Age: 69 Year
  Sex: Female

DRUGS (8)
  1. HYDROXYCHLOROQUINE/00072603/ [Concomitant]
     Active Substance: HYDROXYCHLOROQUINE SULFATE
     Indication: RHEUMATOID ARTHRITIS
     Dosage: 200 MILLIGRAM DAILY;
     Route: 048
  2. HYDROXYCHLOROQUINE SULFATE. [Concomitant]
     Active Substance: HYDROXYCHLOROQUINE SULFATE
     Indication: RHEUMATOID ARTHRITIS
  3. MELOXICAM. [Concomitant]
     Active Substance: MELOXICAM
  4. PREDNISONE. [Concomitant]
     Active Substance: PREDNISONE
     Indication: RHEUMATOID ARTHRITIS
     Dosage: 5 MILLIGRAM DAILY;
  5. PERINDOPRIL [Concomitant]
     Active Substance: PERINDOPRIL
  6. PANTOLOC /01263201/ [Concomitant]
     Active Substance: PANTOPRAZOLE SODIUM
  7. METHOTREXATE. [Suspect]
     Active Substance: METHOTREXATE
     Indication: RHEUMATOID ARTHRITIS
     Route: 048
  8. CANNABIDIOL [Concomitant]
     Active Substance: CANNABIDIOL

REACTIONS (7)
  - Drug ineffective [Not Recovered/Not Resolved]
  - Joint injury [Not Recovered/Not Resolved]
  - Mobility decreased [Not Recovered/Not Resolved]
  - Ulcer [Not Recovered/Not Resolved]
  - Back pain [Not Recovered/Not Resolved]
  - Finger deformity [Not Recovered/Not Resolved]
  - Intracranial aneurysm [Not Recovered/Not Resolved]
